FAERS Safety Report 17457887 (Version 2)
Quarter: 2020Q1

REPORT INFORMATION
  Report Type: Spontaneous
  Country: GR (occurrence: GR)
  Receive Date: 20200225
  Receipt Date: 20200227
  Transmission Date: 20200409
  Serious: Yes (Hospitalization, Other)
  Sender: FDA-Public Use
  Company Number: GR-PFIZER INC-2006107346

PATIENT
  Age: 78 Year
  Sex: Male

DRUGS (2)
  1. BUPIVACAINE HYDROCHLORIDE. [Suspect]
     Active Substance: BUPIVACAINE HYDROCHLORIDE
     Indication: BACK PAIN
     Dosage: UNK (L2-L3 AND L3-L4 FACET JOINT INJECTIONS)
  2. METHYLPREDNISOLONE ACETATE. [Suspect]
     Active Substance: METHYLPREDNISOLONE ACETATE
     Dosage: UNK (L2-L3 AND L3-L4 FACET JOINT INJECTIONS)

REACTIONS (2)
  - Pseudomonas infection [Recovered/Resolved]
  - Intervertebral discitis [Recovered/Resolved]
